FAERS Safety Report 10953397 (Version 1)
Quarter: 2015Q1

REPORT INFORMATION
  Report Type: Report from Study
  Country: US (occurrence: US)
  Receive Date: 20150325
  Receipt Date: 20150325
  Transmission Date: 20150721
  Serious: Yes (Other)
  Sender: FDA-Public Use
  Company Number: US-BAYER-2014-156410

PATIENT
  Age: 79 Year
  Sex: Male
  Weight: 79.37 kg

DRUGS (11)
  1. TYVASO [Suspect]
     Active Substance: TREPROSTINIL
     Indication: PULMONARY HYPERTENSION
     Dosage: 0.6 MG/ML (3-12 BREATHS/18-72 MICROGRAMS (QID)
     Route: 055
     Dates: start: 20111221
  2. TYVASO [Suspect]
     Active Substance: TREPROSTINIL
     Indication: PULMONARY HYPERTENSION
     Dosage: 0.6 MG/ML (3-12 BREATHS/18-72 MICROGRAMS (QID)
     Route: 055
     Dates: start: 20111221
  3. TYVASO [Suspect]
     Active Substance: TREPROSTINIL
     Indication: PULMONARY HYPERTENSION
     Dosage: 0.6 MG/ML (3-12 BREATHS/18-72 MICROGRAMS (QID)
     Route: 055
     Dates: start: 20111221
  4. TYVASO [Suspect]
     Active Substance: TREPROSTINIL
     Indication: PULMONARY HYPERTENSION
     Dosage: 0.6 MG/ML (3-12 BREATHS/18-72 MICROGRAMS (QID)
     Route: 055
     Dates: start: 20111221
  5. ADEMPAS [Suspect]
     Active Substance: RIOCIGUAT
     Indication: PRODUCT USED FOR UNKNOWN INDICATION
     Dosage: 2.5 MG, TID
     Route: 048
     Dates: start: 20140821, end: 2014
  6. TYVASO [Suspect]
     Active Substance: TREPROSTINIL
     Indication: PULMONARY HYPERTENSION
     Dosage: 0.6 MG/ML (3-12 BREATHS/18-72 MICROGRAMS (QID)
     Route: 055
     Dates: start: 20111221
  7. ADCIRCA [Concomitant]
     Active Substance: TADALAFIL
  8. ADEMPAS [Suspect]
     Active Substance: RIOCIGUAT
     Indication: COR PULMONALE CHRONIC
     Dosage: 2MG 3X/DAY
     Route: 048
  9. LETAIRIS [Suspect]
     Active Substance: AMBRISENTAN
     Indication: PRODUCT USED FOR UNKNOWN INDICATION
     Dosage: 10 MG, QD
     Dates: start: 20110909
  10. ADEMPAS [Suspect]
     Active Substance: RIOCIGUAT
     Indication: COR PULMONALE CHRONIC
     Dosage: 2.5 MG, TID
     Route: 048
     Dates: end: 2014
  11. ADEMPAS [Suspect]
     Active Substance: RIOCIGUAT
     Indication: PULMONARY HYPERTENSION
     Dosage: 2 MG, TID
     Route: 048
     Dates: start: 20140821

REACTIONS (14)
  - Dyspnoea [None]
  - Neoplasm malignant [None]
  - Pyrexia [None]
  - Hypotension [Not Recovered/Not Resolved]
  - Dyspnoea exertional [Unknown]
  - Drug ineffective [Unknown]
  - Nasal congestion [Unknown]
  - Hypotension [Unknown]
  - Paranasal sinus hypersecretion [None]
  - Dyspnoea [Unknown]
  - Cough [None]
  - Blood pressure fluctuation [Unknown]
  - Productive cough [Unknown]
  - Fatigue [None]

NARRATIVE: CASE EVENT DATE: 2014
